FAERS Safety Report 9155022 (Version 1)
Quarter: 2013Q1

REPORT INFORMATION
  Report Type: Report from Study
  Country: US (occurrence: US)
  Receive Date: 20130311
  Receipt Date: 20130311
  Transmission Date: 20140127
  Serious: No
  Sender: FDA-Public Use
  Company Number: US-ABBOTT-13P-163-1038737-00

PATIENT
  Sex: Female

DRUGS (2)
  1. LUPRON DEPOT [Suspect]
     Indication: ENDOMETRIOSIS
     Dosage: RIGHT GLUTEAL MUSCLE
     Route: 030
     Dates: start: 20121214
  2. LUPRON DEPOT [Suspect]
     Dosage: LEFT GLUTEAL MUSCLE
     Route: 030
     Dates: start: 20130118

REACTIONS (1)
  - Inappropriate schedule of drug administration [Unknown]
